FAERS Safety Report 5421810-8 (Version None)
Quarter: 2007Q3

REPORT INFORMATION
  Report Type: 
  Country: None (occurrence: None)
  Receive Date: 20070820
  Receipt Date: 20070803
  Transmission Date: 20080115
  Serious: Yes (Other)
  Sender: FDA-Public Use
  Company Number: 2007US-09025

PATIENT
  Age: 38 Year
  Sex: Female

DRUGS (1)
  1. ISOTRETINOIN [Suspect]
     Indication: ACNE
     Dosage: 20 MG, QD, ORAL
     Route: 048
     Dates: start: 20070702, end: 20070711

REACTIONS (2)
  - CONSTIPATION [None]
  - HAEMATOCHEZIA [None]
